FAERS Safety Report 5522522-2 (Version None)
Quarter: 2007Q4

REPORT INFORMATION
  Report Type: 
  Country: None (occurrence: None)
  Receive Date: 20071120
  Receipt Date: 20071018
  Transmission Date: 20080405
  Serious: Yes (Other)
  Sender: FDA-Public Use
  Company Number: US-PFIZER INC-2007076587

PATIENT
  Sex: Female
  Weight: 50 kg

DRUGS (3)
  1. XALATAN [Suspect]
     Indication: GLAUCOMA
  2. LIBRIUM [Concomitant]
  3. CORTICOSTEROIDS [Concomitant]

REACTIONS (3)
  - DRY EYE [None]
  - EYE PAIN [None]
  - VENOUS OCCLUSION [None]
